FAERS Safety Report 4356895-3 (Version None)
Quarter: 2004Q2

REPORT INFORMATION
  Report Type: 
  Country: None (occurrence: None)
  Receive Date: 20040507
  Receipt Date: 20040427
  Transmission Date: 20050107
  Serious: Yes (Hospitalization)
  Sender: FDA-Public Use
  Company Number: US-JNJFOC-20040406353

PATIENT
  Age: 55 Year
  Sex: Female
  Weight: 58.9676 kg

DRUGS (1)
  1. DURAGESIC [Suspect]
     Indication: PAIN
     Dosage: 75 UG/JR, 1 IN 72 HOUR, TRANSDERMAL
     Route: 062
     Dates: start: 20031105, end: 20031107

REACTIONS (4)
  - LETHARGY [None]
  - SPEECH DISORDER [None]
  - STUPOR [None]
  - VOMITING [None]
